FAERS Safety Report 8312166-1 (Version None)
Quarter: 2012Q2

REPORT INFORMATION
  Report Type: 
  Country: None (occurrence: None)
  Receive Date: 20120425
  Receipt Date: 20120416
  Transmission Date: 20120825
  Serious: Yes (Other)
  Sender: FDA-Public Use
  Company Number: ES-FRI-1000029831

PATIENT
  Age: 80 Year
  Sex: Female

DRUGS (8)
  1. METFORMIN HCL [Concomitant]
  2. FORMOTEROL FUMARATE [Concomitant]
  3. DILTIAZEM HCL [Suspect]
  4. TIOTROPIUM BROMIDE [Concomitant]
  5. OMEPRAZOLE [Concomitant]
  6. ACENOCOUMAROL [Suspect]
  7. ACETAMINOPHEN [Concomitant]
  8. BUDESONIDE [Concomitant]

REACTIONS (1)
  - CALCIPHYLAXIS [None]
